FAERS Safety Report 18988668 (Version 1)
Quarter: 2021Q1

REPORT INFORMATION
  Report Type: Spontaneous
  Country: DK (occurrence: DK)
  Receive Date: 20210309
  Receipt Date: 20210309
  Transmission Date: 20210420
  Serious: Yes (Hospitalization)
  Sender: FDA-Public Use
  Company Number: DK-009507513-2103DNK000216

PATIENT
  Age: 74 Year
  Sex: Female

DRUGS (10)
  1. FORXIGA [Concomitant]
     Active Substance: DAPAGLIFLOZIN
     Indication: TYPE 2 DIABETES MELLITUS
     Dates: start: 202011
  2. VELMETIA [Suspect]
     Active Substance: METFORMIN\SITAGLIPTIN
     Indication: TYPE 2 DIABETES MELLITUS
     Dosage: STRENGTH: 1000 MG + 50 MG
     Route: 048
     Dates: start: 2012
  3. ELTROXIN [Concomitant]
     Active Substance: LEVOTHYROXINE
     Indication: HYPOMETABOLISM
     Dates: start: 20190521
  4. ESTRING [Concomitant]
     Active Substance: ESTRADIOL
     Indication: HORMONE THERAPY
     Dates: start: 20150504
  5. OMEPRAZOLE. [Concomitant]
     Active Substance: OMEPRAZOLE
     Indication: GASTROOESOPHAGEAL REFLUX DISEASE
     Dates: start: 20150804
  6. DERMOVAT [Concomitant]
     Active Substance: CLOBETASOL
     Indication: SKIN DISORDER
     Dates: start: 20150513
  7. OZEMPIC [Suspect]
     Active Substance: SEMAGLUTIDE
     Indication: TYPE 2 DIABETES MELLITUS
     Dosage: STRENGHT: 1 MG
     Route: 058
     Dates: start: 20190404
  8. ATORVASTATIN 1A PHARMA [Concomitant]
     Active Substance: ATORVASTATIN
     Indication: CARDIOVASCULAR EVENT PROPHYLAXIS
     Dates: start: 20200311
  9. ALNOK [Concomitant]
     Active Substance: CETIRIZINE HYDROCHLORIDE
     Indication: SEASONAL ALLERGY
     Dates: start: 20140515
  10. ATORVASTATIN CALCIUM. [Concomitant]
     Active Substance: ATORVASTATIN CALCIUM
     Indication: HYPERCHOLESTEROLAEMIA
     Dates: start: 20170822, end: 20210201

REACTIONS (3)
  - Cerebral disorder [Unknown]
  - Restlessness [Unknown]
  - Erythema [Unknown]

NARRATIVE: CASE EVENT DATE: 20210201
